FAERS Safety Report 25082275 (Version 1)
Quarter: 2025Q1

REPORT INFORMATION
  Report Type: Spontaneous
  Country: US (occurrence: US)
  Receive Date: 20250317
  Receipt Date: 20250317
  Transmission Date: 20250409
  Serious: Yes (Hospitalization)
  Sender: ABBVIE
  Company Number: US-ABBVIE-6174719

PATIENT
  Age: 76 Year
  Sex: Female

DRUGS (1)
  1. DEPAKOTE [Suspect]
     Active Substance: DIVALPROEX SODIUM
     Indication: Epilepsy
     Route: 048
     Dates: start: 202502

REACTIONS (10)
  - Hospitalisation [Unknown]
  - Hypersomnia [Unknown]
  - Delirium [Unknown]
  - Overdose [Unknown]
  - Condition aggravated [Unknown]
  - Therapeutic response shortened [Unknown]
  - Unevaluable event [Unknown]
  - Asthenia [Unknown]
  - Fatigue [Unknown]
  - Hallucination [Unknown]

NARRATIVE: CASE EVENT DATE: 20250101
